FAERS Safety Report 4644853-0 (Version None)
Quarter: 2005Q2

REPORT INFORMATION
  Report Type: 
  Country: None (occurrence: None)
  Receive Date: 20050422
  Receipt Date: 20050412
  Transmission Date: 20051028
  Serious: Yes (Hospitalization, Other)
  Sender: FDA-Public Use
  Company Number: USA-2003-0010606

PATIENT
  Age: 66 Year
  Sex: Male

DRUGS (26)
  1. OXYCONTIN [Suspect]
     Indication: PAIN
  2. HUMULIN N (INSULIN INJECTION, ISOPHANE) [Concomitant]
  3. PRILOSEC [Concomitant]
  4. HYDRALAZINE HCL [Concomitant]
  5. IMDUR [Concomitant]
  6. COZAAR [Concomitant]
  7. TOPROL-XL [Concomitant]
  8. LASIX [Concomitant]
  9. DIGOXIN [Concomitant]
  10. ASPIRIN [Concomitant]
  11. FLOVENT [Concomitant]
  12. TRICOR [Concomitant]
  13. ISOSORBIDE MONONITRATE [Concomitant]
  14. TEMAZEPAM [Concomitant]
  15. NTG (GLYCERYL TRINITRATE) [Concomitant]
  16. COMBIVENT (SALBUTAMOL SULFATE, IPRATROPIUM BROMIDE) [Concomitant]
  17. VANCENASE AQ (BECLOMETASONE DIPROPIONATE) [Concomitant]
  18. SENOKOT [Concomitant]
  19. HUMALOG [Concomitant]
  20. TRIAMTERENE (TRIAMTERENE) [Concomitant]
  21. VIOXX [Concomitant]
  22. FLOMAX [Concomitant]
  23. TOPROL-XL [Concomitant]
  24. DARVOCET-N (DEXTROPROPOXYPHENE NAPSILATE) [Concomitant]
  25. COLACE CAPSULES (DOCUSATE SODIUM) [Concomitant]
  26. PEPCID [Concomitant]

REACTIONS (15)
  - ABDOMINAL PAIN [None]
  - ANXIETY [None]
  - ARRHYTHMIA [None]
  - CHEST PAIN [None]
  - DEPRESSION [None]
  - DRUG DEPENDENCE [None]
  - DRUG INEFFECTIVE [None]
  - DRUG TOLERANCE [None]
  - DRUG WITHDRAWAL SYNDROME [None]
  - LOSS OF CONSCIOUSNESS [None]
  - MYOCARDIAL INFARCTION [None]
  - PAIN [None]
  - RENAL FAILURE ACUTE [None]
  - SYNCOPE [None]
  - TRICUSPID VALVE INCOMPETENCE [None]
